FAERS Safety Report 4478351-4 (Version None)
Quarter: 2004Q4

REPORT INFORMATION
  Report Type: 
  Country: None (occurrence: None)
  Receive Date: 20041013
  Receipt Date: 20040923
  Transmission Date: 20050328
  Serious: Yes (Hospitalization)
  Sender: FDA-Public Use
  Company Number: FR_040904858

PATIENT
  Age: 68 Year
  Sex: Male

DRUGS (4)
  1. ZYPREXA [Suspect]
     Indication: DYSTHYMIC DISORDER
     Dosage: 7.5 MG DAY
     Dates: start: 20040818
  2. TERCIAN (CYAMEMAZINE) [Concomitant]
  3. DEPAKOTE [Concomitant]
  4. FLUANXOL (FLUPENTIXOL DECANOATE) [Concomitant]

REACTIONS (2)
  - PYREXIA [None]
  - SUBILEUS [None]
